FAERS Safety Report 16898414 (Version 3)
Quarter: 2020Q2

REPORT INFORMATION
  Report Type: Report from Study
  Country: None (occurrence: US)
  Receive Date: 20191009
  Receipt Date: 20200407
  Transmission Date: 20200713
  Serious: Yes (Other)
  Sender: FDA-Public Use
  Company Number: US-ABBVIE-19K-163-2750714-00

PATIENT
  Age: 57 Year
  Sex: Male

DRUGS (2)
  1. HUMIRA [Suspect]
     Active Substance: ADALIMUMAB
     Route: 058
     Dates: start: 2020
  2. HUMIRA [Suspect]
     Active Substance: ADALIMUMAB
     Indication: RHEUMATOID ARTHRITIS
     Route: 058
     Dates: start: 20190402, end: 2020

REACTIONS (8)
  - Joint stiffness [Recovering/Resolving]
  - Chest pain [Recovered/Resolved]
  - Fatigue [Unknown]
  - Arthralgia [Recovering/Resolving]
  - Precancerous skin lesion [Unknown]
  - Pain [Recovering/Resolving]
  - Joint swelling [Recovering/Resolving]
  - Discomfort [Recovering/Resolving]

NARRATIVE: CASE EVENT DATE: 2019
